FAERS Safety Report 10996648 (Version 2)
Quarter: 2015Q2

REPORT INFORMATION
  Report Type: Spontaneous
  Country: US (occurrence: US)
  Receive Date: 20150408
  Receipt Date: 20150424
  Transmission Date: 20150821
  Serious: Yes (Other)
  Sender: FDA-Public Use
  Company Number: US-BIOGENIDEC-2015BI045227

PATIENT
  Sex: Female

DRUGS (2)
  1. AVONEX [Suspect]
     Active Substance: INTERFERON BETA-1A
     Indication: MULTIPLE SCLEROSIS
     Route: 030
     Dates: start: 20110510, end: 20120109
  2. AVONEX [Suspect]
     Active Substance: INTERFERON BETA-1A
     Indication: MULTIPLE SCLEROSIS
     Route: 030
     Dates: end: 20120216

REACTIONS (5)
  - Adverse drug reaction [Recovered/Resolved]
  - Hip surgery [Recovered/Resolved]
  - Drug intolerance [Recovered/Resolved]
  - Carpal tunnel syndrome [Recovered/Resolved]
  - Malaise [Recovered/Resolved]
